FAERS Safety Report 6267599-4 (Version None)
Quarter: 2009Q3

REPORT INFORMATION
  Report Type: 
  Country: None (occurrence: None)
  Receive Date: 20090714
  Receipt Date: 20090706
  Transmission Date: 20100115
  Serious: Yes (Hospitalization, Other)
  Sender: FDA-Public Use
  Company Number: US-ELI_LILLY_AND_COMPANY-US200906002197

PATIENT
  Sex: Female

DRUGS (11)
  1. FORTEO [Suspect]
     Dosage: 20 UG, DAILY (1/D)
     Dates: start: 20070901
  2. CENESTIN [Concomitant]
  3. SYNTHROID [Concomitant]
  4. NEXIUM [Concomitant]
  5. KLONOPIN [Concomitant]
  6. DOSTINEX [Concomitant]
  7. DURAGESIC-100 [Concomitant]
  8. PROZAC [Concomitant]
  9. OPANA [Concomitant]
  10. CALCIUM W/VITAMIN D NOS [Concomitant]
  11. HYDROCHLOROTHIAZIDE [Concomitant]

REACTIONS (2)
  - PITUITARY TUMOUR BENIGN [None]
  - PNEUMONIA [None]
